FAERS Safety Report 11681634 (Version 1)
Quarter: 2015Q4

REPORT INFORMATION
  Report Type: Spontaneous
  Country: US (occurrence: US)
  Receive Date: 20151029
  Receipt Date: 20151029
  Transmission Date: 20160304
  Serious: No
  Sender: FDA-Public Use
  Company Number: US-009507513-1510USA011543

PATIENT
  Sex: Female

DRUGS (2)
  1. VITAMINS (UNSPECIFIED) [Concomitant]
     Active Substance: VITAMINS
  2. NASONEX [Suspect]
     Active Substance: MOMETASONE FUROATE
     Dosage: STRENGTH: 50 (UNIT NOT PROVIDED)
     Route: 055
     Dates: start: 2000

REACTIONS (2)
  - Product quality issue [Unknown]
  - Palpitations [Unknown]
